FAERS Safety Report 21545841 (Version 2)
Quarter: 2023Q1

REPORT INFORMATION
  Report Type: Report from Study
  Country: US (occurrence: US)
  Receive Date: 20221103
  Receipt Date: 20230303
  Transmission Date: 20230418
  Serious: Yes (Other)
  Sender: FDA-Public Use
  Company Number: US-ABBVIE-4185663

PATIENT
  Age: 48 Year
  Sex: Female
  Weight: 99.79 kg

DRUGS (2)
  1. HUMIRA [Suspect]
     Active Substance: ADALIMUMAB
     Indication: Psoriasis
     Route: 058
  2. PFIZER-BIONTECH COVID-19 VACCINE [Concomitant]
     Active Substance: TOZINAMERAN
     Indication: COVID-19 immunisation
     Dosage: TIME INTERVAL: TOTAL: COVID VACCINE
     Route: 030

REACTIONS (4)
  - Lower limb fracture [Recovering/Resolving]
  - Foot fracture [Recovering/Resolving]
  - Accident [Unknown]
  - Hip fracture [Recovering/Resolving]

NARRATIVE: CASE EVENT DATE: 20020603
